FAERS Safety Report 4336863-8 (Version None)
Quarter: 2004Q2

REPORT INFORMATION
  Report Type: 
  Country: None (occurrence: None)
  Receive Date: 20040408
  Receipt Date: 20040329
  Transmission Date: 20050107
  Serious: Yes (Hospitalization)
  Sender: FDA-Public Use
  Company Number: US-JNJFOC-20031204861

PATIENT
  Age: 78 Year
  Sex: Female
  Weight: 87.9978 kg

DRUGS (3)
  1. DITROPAN XL [Suspect]
     Indication: URINARY INCONTINENCE
     Dosage: 10 MG, ORAL
     Route: 048
     Dates: start: 20031119, end: 20031210
  2. HEART MEDICINE (CARDIAC THERAPY) [Concomitant]
  3. SYNTHROID [Concomitant]

REACTIONS (8)
  - DEHYDRATION [None]
  - HALLUCINATION [None]
  - PYREXIA [None]
  - SPEECH DISORDER [None]
  - TREATMENT NONCOMPLIANCE [None]
  - URINARY TRACT INFECTION [None]
  - UROSEPSIS [None]
  - WEIGHT DECREASED [None]
